FAERS Safety Report 11434537 (Version 3)
Quarter: 2017Q3

REPORT INFORMATION
  Report Type: Report from Study
  Country: US (occurrence: US)
  Receive Date: 20150831
  Receipt Date: 20170929
  Transmission Date: 20171127
  Serious: Yes (Hospitalization)
  Sender: FDA-Public Use
  Company Number: US-JNJFOC-20150820043

PATIENT
  Age: 11 Year
  Sex: Male
  Weight: 32 kg

DRUGS (5)
  1. ACTIGALL [Concomitant]
     Active Substance: URSODIOL
     Route: 065
  2. REMICADE [Suspect]
     Active Substance: INFLIXIMAB
     Indication: COLITIS ULCERATIVE
     Route: 042
     Dates: start: 20140813, end: 20140923
  3. ENTYVIO [Concomitant]
     Active Substance: VEDOLIZUMAB
     Indication: COLITIS ULCERATIVE
     Route: 065
     Dates: start: 20141106, end: 20150605
  4. PREDNISONE. [Concomitant]
     Active Substance: PREDNISONE
     Indication: COLITIS ULCERATIVE
     Route: 065
  5. PREVACID [Concomitant]
     Active Substance: LANSOPRAZOLE
     Route: 065

REACTIONS (2)
  - Colitis ulcerative [Recovered/Resolved with Sequelae]
  - Post procedural discharge [Recovered/Resolved]

NARRATIVE: CASE EVENT DATE: 20150715
